FAERS Safety Report 7003754-3 (Version None)
Quarter: 2010Q3

REPORT INFORMATION
  Report Type: 
  Country: None (occurrence: None)
  Receive Date: 20100920
  Receipt Date: 20091130
  Transmission Date: 20110219
  Serious: No
  Sender: FDA-Public Use
  Company Number: US-WYE-H12425309

PATIENT
  Sex: Female
  Weight: 74 kg

DRUGS (8)
  1. PRISTIQ [Suspect]
     Indication: DEPRESSION
     Route: 048
     Dates: start: 20091129
  2. PRISTIQ [Suspect]
     Indication: PAIN
  3. LORTAB [Concomitant]
  4. OXYCODONE HCL [Suspect]
     Dosage: UNSPECIFIED
     Route: 065
  5. NORVASC [Concomitant]
  6. SIMVASTATIN [Concomitant]
  7. DIOVAN [Concomitant]
  8. LABETALOL HCL [Concomitant]

REACTIONS (2)
  - HEADACHE [None]
  - NAUSEA [None]
